FAERS Safety Report 7487303-1 (Version None)
Quarter: 2011Q2

REPORT INFORMATION
  Report Type: 
  Country: None (occurrence: None)
  Receive Date: 20110510
  Receipt Date: 20110504
  Transmission Date: 20111010
  Serious: Yes (Other)
  Sender: FDA-Public Use
  Company Number: WAES 1105ESP00001

PATIENT
  Age: 30 Year
  Sex: Female

DRUGS (3)
  1. NAPROXEN [Concomitant]
  2. MAXALT [Suspect]
     Indication: HEMICEPHALALGIA
     Dosage: PO
     Route: 048
  3. MAXALT [Suspect]
     Indication: HEADACHE
     Dosage: PO
     Route: 048

REACTIONS (2)
  - HYPOAESTHESIA [None]
  - COMPLICATED MIGRAINE [None]
